FAERS Safety Report 24216872 (Version 2)
Quarter: 2024Q3

REPORT INFORMATION
  Report Type: Spontaneous
  Country: US (occurrence: None)
  Receive Date: 20240816
  Receipt Date: 20240920
  Transmission Date: 20241017
  Serious: No
  Sender: USAntibiotics
  Company Number: US-USAntibiotics-000330

PATIENT
  Sex: Female

DRUGS (18)
  1. AUGMENTIN [Suspect]
     Active Substance: AMOXICILLIN\CLAVULANATE POTASSIUM
     Indication: Sinusitis
  2. IBRANCE [Concomitant]
     Active Substance: PALBOCICLIB
     Indication: Product used for unknown indication
     Dosage: 100 MG
     Route: 048
     Dates: end: 201807
  3. EXEMESTANE [Concomitant]
     Active Substance: EXEMESTANE
     Indication: Endocrine disorder
  4. TAMOXIFEN [Concomitant]
     Active Substance: TAMOXIFEN
     Indication: Endocrine disorder
  5. ANASTROZOLE [Concomitant]
     Active Substance: ANASTROZOLE
     Indication: Endocrine disorder
  6. LUPRON [Concomitant]
     Active Substance: LEUPROLIDE ACETATE
     Indication: Ovarian operation
  7. GOSERELIN [Concomitant]
     Active Substance: GOSERELIN
     Indication: Ovarian operation
  8. CELEXA [Concomitant]
     Active Substance: CITALOPRAM HYDROBROMIDE
     Indication: Menopausal symptoms
  9. GABAPENTIN [Concomitant]
     Active Substance: GABAPENTIN
     Indication: Menopausal symptoms
     Dosage: 200 MG AT BED TIME
  10. EFFEXOR [Concomitant]
     Active Substance: VENLAFAXINE HYDROCHLORIDE
     Indication: Menopausal symptoms
  11. XGEVA [Concomitant]
     Active Substance: DENOSUMAB
     Indication: Neoplasm
     Dates: end: 201902
  12. ZOLEDRONIC ACID [Concomitant]
     Active Substance: ZOLEDRONIC ACID
     Indication: Bone pain
     Dates: start: 201912
  13. IBRANCE [Concomitant]
     Active Substance: PALBOCICLIB
     Indication: Product used for unknown indication
     Dosage: 75 MG
     Route: 048
     Dates: start: 20240526, end: 20240715
  14. IBRANCE [Concomitant]
     Active Substance: PALBOCICLIB
     Indication: Product used for unknown indication
     Dosage: 75 MG
     Route: 048
     Dates: start: 20240519, end: 20240715
  15. IBRANCE [Concomitant]
     Active Substance: PALBOCICLIB
     Indication: Product used for unknown indication
     Dosage: 75 MG
     Route: 048
     Dates: start: 20240410, end: 20240715
  16. IBRANCE [Concomitant]
     Active Substance: PALBOCICLIB
     Indication: Product used for unknown indication
     Dosage: 75 MG
     Route: 048
     Dates: start: 20240315, end: 20240715
  17. IBRANCE [Concomitant]
     Active Substance: PALBOCICLIB
     Indication: Product used for unknown indication
     Dosage: 75 MG
     Route: 048
     Dates: start: 20240118, end: 20240715
  18. IBRANCE [Concomitant]
     Active Substance: PALBOCICLIB
     Indication: Product used for unknown indication
     Dosage: 75 MG
     Route: 048
     Dates: end: 202007

REACTIONS (1)
  - Drug ineffective [Unknown]
